FAERS Safety Report 6557115-1 (Version None)
Quarter: 2010Q1

REPORT INFORMATION
  Report Type: 
  Country: None (occurrence: None)
  Receive Date: 20100128
  Receipt Date: 20100118
  Transmission Date: 20100710
  Serious: Yes (Death)
  Sender: FDA-Public Use
  Company Number: SE-AMGEN-US287053

PATIENT
  Sex: Female

DRUGS (1)
  1. ENBREL [Suspect]
     Indication: RHEUMATOID ARTHRITIS
     Dosage: DOSE UNKNOWN
     Route: 065
     Dates: start: 20070514, end: 20080301

REACTIONS (10)
  - ARTERIOSCLEROSIS [None]
  - BLOOD POTASSIUM DECREASED [None]
  - CARDIOMEGALY [None]
  - DISORIENTATION [None]
  - EXTENSOR PLANTAR RESPONSE [None]
  - HEPATIC CONGESTION [None]
  - HYPOTENSION [None]
  - PNEUMONIA [None]
  - PULMONARY CONGESTION [None]
  - THROMBOCYTOPENIA [None]
